FAERS Safety Report 6086475-3 (Version None)
Quarter: 2009Q1

REPORT INFORMATION
  Report Type: 
  Country: None (occurrence: None)
  Receive Date: 20090223
  Receipt Date: 20090210
  Transmission Date: 20090719
  Serious: Yes (Death, Congenital Anomaly, Other)
  Sender: FDA-Public Use
  Company Number: PHHY2009US05898

PATIENT
  Age: 26 Week
  Sex: Male

DRUGS (3)
  1. TEGRETOL-XR [Suspect]
     Dosage: UNK
     Route: 064
  2. TOPAMAX [Suspect]
     Dosage: MATERNAL DOSE: 200MG
     Route: 064
  3. TOPAMAX [Suspect]
     Dosage: MATERNAL DOSE: 100MG
     Route: 064
     Dates: start: 20080908

REACTIONS (3)
  - CARDIOVASCULAR DISORDER [None]
  - DRUG EXPOSURE DURING PREGNANCY [None]
  - STILLBIRTH [None]
